FAERS Safety Report 10618843 (Version 1)
Quarter: 2014Q4

REPORT INFORMATION
  Report Type: Spontaneous
  Country: GB (occurrence: None)
  Receive Date: 20141126
  Receipt Date: 20141126
  Transmission Date: 20150529
  Serious: Yes (Hospitalization, Other)
  Sender: FDA-Public Use
  Company Number: FK201405540

PATIENT
  Age: 68 Year
  Sex: Female

DRUGS (12)
  1. ADCAL D3 (LOKOVIT CA) [Concomitant]
  2. ALENDRONIC ACID (ALENDRONIC ACID) [Concomitant]
     Active Substance: ALENDRONIC ACID
  3. FOLIC ACID (FOLIC ACID) [Concomitant]
     Active Substance: FOLIC ACID
  4. METHOTREXATE (MANUFACTURER UNKNOWN) (METHOTREXATE) (METHOTREXATE) [Suspect]
     Active Substance: METHOTREXATE
     Indication: VASCULITIS
     Dosage: 7.5 MG, 1 IN 1 WK, ORAL
     Route: 048
     Dates: start: 20141021
  5. PIROXICAM (PIROXICAM) [Concomitant]
  6. PREDNISOLONE (PREDNISOLONE) [Concomitant]
     Active Substance: PREDNISOLONE
  7. THIAMINE HYDROCHLORIDE (THIAMINE HYDROCHLORIDE) [Concomitant]
  8. LANSOPRAZOLE (LANSOPRAZOLE) [Concomitant]
     Active Substance: LANSOPRAZOLE
  9. LANSOPRAZOLE (LANSOPRAZOLE) [Suspect]
     Active Substance: LANSOPRAZOLE
     Dosage: 15 MG, AS NECESSARY
  10. RAMIPRIL (RAMIPRIL) [Concomitant]
     Active Substance: RAMIPRIL
  11. BENDROFLUMETHIAZIDE (BENDROFLUMETHIAZIDE) [Concomitant]
     Active Substance: BENDROFLUMETHIAZIDE
  12. FUROSEMIDE (FUROSEMIDE) [Concomitant]
     Active Substance: FUROSEMIDE

REACTIONS (9)
  - Body temperature increased [None]
  - Blood potassium decreased [None]
  - Blood urea increased [None]
  - Urosepsis [None]
  - Hypotension [None]
  - Urine odour abnormal [None]
  - Haemoglobin decreased [None]
  - Chills [None]
  - Immunosuppression [None]

NARRATIVE: CASE EVENT DATE: 20141102
